FAERS Safety Report 18855134 (Version 2)
Quarter: 2021Q1

REPORT INFORMATION
  Report Type: Spontaneous
  Country: US (occurrence: US)
  Receive Date: 20210205
  Receipt Date: 20210222
  Transmission Date: 20210420
  Serious: No
  Sender: FDA-Public Use
  Company Number: US-BAYER-2021-055827

PATIENT
  Age: 24 Year
  Sex: Female
  Weight: 63 kg

DRUGS (2)
  1. SUBOXONE [Concomitant]
     Active Substance: BUPRENORPHINE HYDROCHLORIDE\NALOXONE HYDROCHLORIDE
     Route: 060
  2. SKYLA [Suspect]
     Active Substance: LEVONORGESTREL
     Indication: CONTRACEPTION
     Dosage: 14 ?G PER DAY CONTINUOUSLY
     Route: 015
     Dates: start: 2016

REACTIONS (7)
  - Fracture [None]
  - Foreign body in reproductive tract [None]
  - Hypoaesthesia [None]
  - Abdominal pain lower [None]
  - Vaginal haemorrhage [None]
  - Device use issue [Not Recovered/Not Resolved]
  - Factor V deficiency [None]

NARRATIVE: CASE EVENT DATE: 2019
